FAERS Safety Report 8859661 (Version 1)
Quarter: 2012Q4

REPORT INFORMATION
  Report Type: 
  Country: US (occurrence: US)
  Receive Date: 20121025
  Receipt Date: 20121025
  Transmission Date: 20130627
  Serious: Yes (Hospitalization)
  Sender: FDA-Public Use
  Company Number: GXBR2012US002167

PATIENT
  Sex: Female
  Weight: 67.12 kg

DRUGS (1)
  1. METHYLPREDNISOLONE [Suspect]
     Indication: RASH
     Dosage: UNK DF, UNK
     Route: 048
     Dates: start: 200804

REACTIONS (6)
  - Cerebrovascular accident [Recovered/Resolved with Sequelae]
  - Sensory loss [Not Recovered/Not Resolved]
  - Visual acuity reduced [Not Recovered/Not Resolved]
  - Hypoacusis [Not Recovered/Not Resolved]
  - Memory impairment [Not Recovered/Not Resolved]
  - Bradyphrenia [Not Recovered/Not Resolved]
